FAERS Safety Report 18888482 (Version 1)
Quarter: 2021Q1

REPORT INFORMATION
  Report Type: Spontaneous
  Country: DE (occurrence: DE)
  Receive Date: 20210212
  Receipt Date: 20210212
  Transmission Date: 20210420
  Serious: Yes (Death, Other)
  Sender: FDA-Public Use
  Company Number: DE-MYLANLABS-2021M1009163

PATIENT
  Age: 5 Year
  Sex: Male

DRUGS (6)
  1. THIOGUANINE [Suspect]
     Active Substance: THIOGUANINE
     Indication: ACUTE UNDIFFERENTIATED LEUKAEMIA
     Dosage: UNK
  2. CYCLOPHOSPHAMIDE. [Suspect]
     Active Substance: CYCLOPHOSPHAMIDE
     Indication: ACUTE UNDIFFERENTIATED LEUKAEMIA
     Dosage: UNK
  3. ARA?C [Suspect]
     Active Substance: CYTARABINE
     Indication: ACUTE UNDIFFERENTIATED LEUKAEMIA
     Dosage: UNK
  4. TENIPOSIDE. [Suspect]
     Active Substance: TENIPOSIDE
     Indication: ACUTE UNDIFFERENTIATED LEUKAEMIA
     Dosage: UNK
  5. METHOTREXATE. [Suspect]
     Active Substance: METHOTREXATE
     Indication: ACUTE UNDIFFERENTIATED LEUKAEMIA
     Dosage: UNK
  6. 6?MERCAPTOPURINE MONOHYDRATE [Suspect]
     Active Substance: MERCAPTOPURINE
     Indication: ACUTE UNDIFFERENTIATED LEUKAEMIA
     Dosage: UNK

REACTIONS (3)
  - Coma hepatic [Fatal]
  - Hepatitis B [Fatal]
  - Hepatic failure [Fatal]
